FAERS Safety Report 23027254 (Version 3)
Quarter: 2024Q1

REPORT INFORMATION
  Report Type: Spontaneous
  Country: US (occurrence: US)
  Receive Date: 20231004
  Receipt Date: 20240306
  Transmission Date: 20240410
  Serious: Yes (Other)
  Sender: FDA-Public Use
  Company Number: US-SA-SAC20231003000284

PATIENT
  Age: 52 Year
  Sex: Female
  Weight: 124 kg

DRUGS (1)
  1. DUPIXENT [Suspect]
     Active Substance: DUPILUMAB
     Indication: Asthma
     Dosage: 200 MG, QOW
     Route: 058

REACTIONS (8)
  - Spinal fusion surgery [Recovering/Resolving]
  - Pneumonia [Recovered/Resolved]
  - Skull fracture [Recovered/Resolved]
  - Dyspnoea [Unknown]
  - Fall [Recovered/Resolved]
  - Respiratory syncytial virus infection [Recovered/Resolved]
  - COVID-19 [Recovered/Resolved]
  - Post procedural complication [Recovered/Resolved]

NARRATIVE: CASE EVENT DATE: 20230101
